FAERS Safety Report 16516610 (Version 1)
Quarter: 2019Q3

REPORT INFORMATION
  Report Type: Spontaneous
  Country: US (occurrence: US)
  Receive Date: 20190702
  Receipt Date: 20190702
  Transmission Date: 20191004
  Serious: Yes (Other)
  Sender: FDA-Public Use
  Company Number: None

PATIENT
  Age: 29 Year
  Sex: Female

DRUGS (1)
  1. DEPO-PROVERA [Suspect]
     Active Substance: MEDROXYPROGESTERONE ACETATE
     Indication: SUPPRESSED LACTATION
     Route: 030
     Dates: start: 20190603

REACTIONS (5)
  - Poor feeding infant [None]
  - Suppressed lactation [None]
  - Exposure via breast milk [None]
  - Infant irritability [None]
  - Maternal exposure during breast feeding [None]

NARRATIVE: CASE EVENT DATE: 20190603
